FAERS Safety Report 4478617-8 (Version None)
Quarter: 2004Q4

REPORT INFORMATION
  Report Type: 
  Country: None (occurrence: None)
  Receive Date: 20041019
  Receipt Date: 20041008
  Transmission Date: 20050328
  Serious: Yes (Hospitalization)
  Sender: FDA-Public Use
  Company Number: 200413829FR

PATIENT
  Age: 88 Year
  Sex: Female

DRUGS (5)
  1. LASILIX [Suspect]
     Indication: CARDIAC FAILURE
     Route: 048
     Dates: end: 20040416
  2. TRIATEC [Suspect]
     Route: 048
     Dates: end: 20040416
  3. HEMIGOXINE NATIVELLE [Suspect]
     Indication: ARRHYTHMIA
     Route: 048
     Dates: start: 20040115, end: 20040416
  4. LEXOMIL ROCHE [Suspect]
     Route: 048
     Dates: start: 20040215, end: 20040416
  5. PROZAC [Suspect]
     Indication: DYSTHYMIC DISORDER
     Route: 048
     Dates: start: 20040215, end: 20040416

REACTIONS (9)
  - AGITATION [None]
  - ANXIETY [None]
  - ATRIAL FIBRILLATION [None]
  - CARDIAC FAILURE ACUTE [None]
  - CONFUSIONAL STATE [None]
  - DEPRESSION [None]
  - DRUG LEVEL INCREASED [None]
  - HYPOTHYROIDISM [None]
  - RENAL FAILURE [None]
